FAERS Safety Report 6697429-8 (Version None)
Quarter: 2010Q2

REPORT INFORMATION
  Report Type: 
  Country: None (occurrence: None)
  Receive Date: 20100422
  Receipt Date: 20100405
  Transmission Date: 20101027
  Serious: Yes (Other)
  Sender: FDA-Public Use
  Company Number: IMP_04977_2010

PATIENT
  Age: 63 Year
  Sex: Female

DRUGS (3)
  1. CLARITIN-D [Suspect]
     Indication: DRUG USE FOR UNKNOWN INDICATION
     Dosage: (DF), (DF)
     Dates: start: 20100101, end: 20100101
  2. CLARITIN-D [Suspect]
     Indication: DRUG USE FOR UNKNOWN INDICATION
     Dosage: (DF), (DF)
     Dates: start: 20100101
  3. TEGRETOL [Concomitant]

REACTIONS (4)
  - BRONCHITIS [None]
  - CONVULSION [None]
  - PRODUCT SUBSTITUTION ISSUE [None]
  - THERAPEUTIC RESPONSE UNEXPECTED [None]
